FAERS Safety Report 9376952 (Version 1)
Quarter: 2013Q3

REPORT INFORMATION
  Report Type: Spontaneous
  Country: US (occurrence: US)
  Receive Date: 20130701
  Receipt Date: 20130701
  Transmission Date: 20140515
  Serious: Yes (Other)
  Sender: FDA-Public Use
  Company Number: PHEH2013US013899

PATIENT
  Sex: Female

DRUGS (2)
  1. NEORAL [Suspect]
     Indication: PSORIASIS
     Dosage: 100 MG, BID
     Route: 048
  2. HYALURONIC ACID [Concomitant]

REACTIONS (2)
  - Renal disorder [Unknown]
  - Weight decreased [Unknown]
